FAERS Safety Report 21947147 (Version 1)
Quarter: 2023Q1

REPORT INFORMATION
  Report Type: Spontaneous
  Country: US (occurrence: None)
  Receive Date: 20230202
  Receipt Date: 20230202
  Transmission Date: 20230417
  Serious: Yes (Other)
  Sender: FDA-Public Use
  Company Number: None

PATIENT
  Age: 23 Year
  Sex: Male

DRUGS (1)
  1. NEXPLANON [Suspect]
     Active Substance: ETONOGESTREL

REACTIONS (5)
  - Polymenorrhoea [None]
  - Heavy menstrual bleeding [None]
  - Dysmenorrhoea [None]
  - Product communication issue [None]
  - Hypomenorrhoea [None]

NARRATIVE: CASE EVENT DATE: 20210101
